FAERS Safety Report 7749411-7 (Version None)
Quarter: 2011Q3

REPORT INFORMATION
  Report Type: 
  Country: None (occurrence: None)
  Receive Date: 20110914
  Receipt Date: 20110907
  Transmission Date: 20111222
  Serious: Yes (Other)
  Sender: FDA-Public Use
  Company Number: SE-PFIZER INC-2011184308

PATIENT
  Age: 52 Year
  Sex: Male
  Weight: 78 kg

DRUGS (5)
  1. ETALPHA [Concomitant]
     Dosage: 0.5 UG, UNK
     Dates: start: 20110323
  2. ESCITALOPRAM [Concomitant]
     Dosage: 20 MG, UNK
  3. LEVOTHYROXINE SODIUM [Concomitant]
     Dosage: 125 UG, UNK
     Dates: start: 20100517
  4. SUTENT [Suspect]
     Indication: THYROID CANCER
     Dosage: 37.5 MG, UNK
     Route: 048
     Dates: start: 20110629
  5. ATACAND [Concomitant]
     Indication: HYPERTENSION
     Dosage: 32 MG, UNK

REACTIONS (6)
  - HEADACHE [None]
  - FAECES HARD [None]
  - BLOOD PRESSURE INCREASED [None]
  - OROPHARYNGEAL BLISTERING [None]
  - GASTRIC DISORDER [None]
  - HAEMORRHOIDS [None]
